FAERS Safety Report 22311510 (Version 1)
Quarter: 2023Q2

REPORT INFORMATION
  Report Type: Spontaneous
  Country: US (occurrence: US)
  Receive Date: 20230511
  Receipt Date: 20230511
  Transmission Date: 20230722
  Serious: No
  Sender: FDA-Public Use
  Company Number: US-BoehringerIngelheim-2023-BI-237000

PATIENT
  Sex: Male

DRUGS (1)
  1. JARDIANCE [Suspect]
     Active Substance: EMPAGLIFLOZIN
     Indication: Type 2 diabetes mellitus
     Dates: end: 20230417

REACTIONS (4)
  - Penile discharge [Recovering/Resolving]
  - Penile swelling [Recovering/Resolving]
  - Pruritus genital [Recovering/Resolving]
  - Penile burning sensation [Recovering/Resolving]

NARRATIVE: CASE EVENT DATE: 20230401
